FAERS Safety Report 4341374-X (Version None)
Quarter: 2004Q2

REPORT INFORMATION
  Report Type: 
  Country: None (occurrence: None)
  Receive Date: 20040414
  Receipt Date: 20040406
  Transmission Date: 20050107
  Serious: No
  Sender: FDA-Public Use
  Company Number: 2004019989

PATIENT
  Age: 60 Year
  Sex: Male
  Weight: 81.6475 kg

DRUGS (1)
  1. LISTERINE ANTISEPTIC MOUTHWASH (EUCALYPTOL, MENTHOL, METHYL SALICYLATE [Suspect]
     Indication: DENTAL CARE
     Dosage: ORAL
     Route: 048
     Dates: start: 20030101

REACTIONS (5)
  - ALCOHOL POISONING [None]
  - DISORIENTATION [None]
  - FEELING ABNORMAL [None]
  - GAIT DISTURBANCE [None]
  - INTENTIONAL MISUSE [None]
